FAERS Safety Report 10233539 (Version 1)
Quarter: 2014Q2

REPORT INFORMATION
  Report Type: Spontaneous
  Country: US (occurrence: None)
  Receive Date: 20140611
  Receipt Date: 20140611
  Transmission Date: 20141212
  Serious: Yes (Other)
  Sender: FDA-Public Use
  Company Number: None

PATIENT
  Age: 62 Year
  Sex: Female
  Weight: 88.2 kg

DRUGS (11)
  1. EVEROLIMUS [Suspect]
     Indication: BREAST CANCER METASTATIC
     Route: 048
  2. LETROZOLE [Concomitant]
  3. LAPATINIB [Concomitant]
  4. METFORMIN [Concomitant]
  5. CELECOXIB [Concomitant]
  6. DENOSUMAB [Concomitant]
  7. WARFARIN [Concomitant]
  8. CLINDAMYCIN [Concomitant]
  9. ATIVAN [Concomitant]
  10. MULTI VITAMIN [Concomitant]
  11. OMEGA 3 FATTY ACID [Concomitant]

REACTIONS (7)
  - Lip pain [None]
  - Nasopharyngitis [None]
  - Cough [None]
  - Rash [None]
  - Dry skin [None]
  - Accidental overdose [None]
  - Incorrect dose administered [None]
